FAERS Safety Report 5165294-6 (Version None)
Quarter: 2006Q4

REPORT INFORMATION
  Report Type: 
  Country: None (occurrence: None)
  Receive Date: 20061124
  Receipt Date: 20061114
  Transmission Date: 20070319
  Serious: Yes (Hospitalization, Other)
  Sender: FDA-Public Use
  Company Number: 2006142377

PATIENT
  Age: 32 Year
  Sex: Male
  Weight: 121 kg

DRUGS (5)
  1. SOMAVERT [Suspect]
     Indication: ACROMEGALY
     Dosage: (15 MG), SUBCUTANEOUS
     Route: 058
     Dates: start: 20040901
  2. THYREX (LEVOTHYROXINE SODIUM) [Concomitant]
  3. DHEA (PRASTERONE) [Concomitant]
  4. TESTOSTERON (TESTOSTEROEN PROPIONATE) [Concomitant]
  5. HYDROCORTONE (HYDROCORTISONE) [Concomitant]

REACTIONS (1)
  - THALAMUS HAEMORRHAGE [None]
